FAERS Safety Report 13694164 (Version 1)
Quarter: 2017Q2

REPORT INFORMATION
  Report Type: Spontaneous
  Country: IT (occurrence: IT)
  Receive Date: 20170627
  Receipt Date: 20170627
  Transmission Date: 20170830
  Serious: Yes (Other)
  Sender: FDA-Public Use
  Company Number: PHHY2017IT091452

PATIENT
  Age: 24 Year
  Sex: Female

DRUGS (2)
  1. KETOPROFEN. [Interacting]
     Active Substance: KETOPROFEN
     Indication: HEADACHE
     Dosage: 80 MG, UNK
     Route: 048
  2. KETOROLAC [Suspect]
     Active Substance: KETOROLAC\KETOROLAC TROMETHAMINE
     Indication: HEADACHE
     Dosage: 10 MG, UNK
     Route: 030

REACTIONS (6)
  - Rectal haemorrhage [Unknown]
  - Incorrect drug administration duration [Unknown]
  - Product use in unapproved indication [Unknown]
  - Labelled drug-drug interaction medication error [Unknown]
  - Drug prescribing error [Unknown]
  - Melaena [Unknown]
